FAERS Safety Report 13862759 (Version 2)
Quarter: 2018Q3

REPORT INFORMATION
  Report Type: Report from Study
  Country: DE (occurrence: DE)
  Receive Date: 20170814
  Receipt Date: 20180802
  Transmission Date: 20181010
  Serious: Yes (Other)
  Sender: FDA-Public Use
  Company Number: DE-ROCHE-1977752

PATIENT
  Age: 86 Year
  Sex: Female
  Weight: 51 kg

DRUGS (21)
  1. LUCENTIS [Suspect]
     Active Substance: RANIBIZUMAB
     Dosage: 1X IN RIGHT EYE
     Route: 050
     Dates: start: 20160215
  2. LUCENTIS [Suspect]
     Active Substance: RANIBIZUMAB
     Dosage: 1X IN RIGHT EYE
     Route: 050
     Dates: start: 20170313
  3. LUCENTIS [Suspect]
     Active Substance: RANIBIZUMAB
     Dosage: 1X IN RIGHT EYE
     Route: 050
     Dates: start: 20161031
  4. LUCENTIS [Suspect]
     Active Substance: RANIBIZUMAB
     Dosage: 1X IN RIGHT EYE
     Route: 050
     Dates: start: 20151005
  5. LUCENTIS [Suspect]
     Active Substance: RANIBIZUMAB
     Dosage: 1X IN RIGHT EYE
     Route: 050
     Dates: start: 20151207
  6. LUCENTIS [Suspect]
     Active Substance: RANIBIZUMAB
     Dosage: 1X IN RIGHT EYE
     Route: 050
     Dates: start: 20160321
  7. LUCENTIS [Suspect]
     Active Substance: RANIBIZUMAB
     Dosage: 1X IN RIGHT EYE
     Route: 050
     Dates: start: 20160523
  8. LUCENTIS [Suspect]
     Active Substance: RANIBIZUMAB
     Dosage: 1X IN LEFT EYE
     Route: 050
     Dates: start: 20161212
  9. LUCENTIS [Suspect]
     Active Substance: RANIBIZUMAB
     Dosage: 1X IN LEFT EYE
     Route: 050
     Dates: start: 20170123
  10. LUCENTIS [Suspect]
     Active Substance: RANIBIZUMAB
     Dosage: 1X IN LEFT EYE
     Route: 050
     Dates: start: 20161017
  11. LUCENTIS [Suspect]
     Active Substance: RANIBIZUMAB
     Indication: NEOVASCULAR AGE-RELATED MACULAR DEGENERATION
     Dosage: 1X IN RIGHT EYE
     Route: 050
     Dates: start: 20150907
  12. LUCENTIS [Suspect]
     Active Substance: RANIBIZUMAB
     Dosage: 1X IN RIGHT EYE
     Route: 050
     Dates: start: 20151109
  13. LUCENTIS [Suspect]
     Active Substance: RANIBIZUMAB
     Dosage: 1X IN RIGHT EYE
     Route: 050
     Dates: start: 20160725
  14. LUCENTIS [Suspect]
     Active Substance: RANIBIZUMAB
     Dosage: 1X IN LEFT EYE
     Route: 050
     Dates: start: 20160729
  15. LUCENTIS [Suspect]
     Active Substance: RANIBIZUMAB
     Dosage: 1X IN LEFT EYE
     Route: 050
     Dates: start: 20160919
  16. LUCENTIS [Suspect]
     Active Substance: RANIBIZUMAB
     Dosage: 1X IN RIGHT EYE
     Route: 050
     Dates: start: 20160905
  17. LUCENTIS [Suspect]
     Active Substance: RANIBIZUMAB
     Dosage: 1X IN LEFT EYE
     Route: 050
     Dates: start: 20161114
  18. LUCENTIS [Suspect]
     Active Substance: RANIBIZUMAB
     Dosage: 1X IN RIGHT EYE
     Route: 050
     Dates: start: 20170102
  19. LUCENTIS [Suspect]
     Active Substance: RANIBIZUMAB
     Dosage: 1X IN LEFT EYE
     Route: 050
     Dates: start: 20170320
  20. LUCENTIS [Suspect]
     Active Substance: RANIBIZUMAB
     Dosage: 1X IN RIGHT EYE
     Route: 050
     Dates: start: 20170529, end: 20170529
  21. LUCENTIS [Suspect]
     Active Substance: RANIBIZUMAB
     Dosage: 1X IN RIGHT EYE
     Route: 050
     Dates: start: 20160104

REACTIONS (1)
  - Normal tension glaucoma [Unknown]

NARRATIVE: CASE EVENT DATE: 20170529
